FAERS Safety Report 5717571-5 (Version None)
Quarter: 2008Q2

REPORT INFORMATION
  Report Type: 
  Country: None (occurrence: None)
  Receive Date: 20080421
  Receipt Date: 20070927
  Transmission Date: 20081010
  Serious: Yes (Hospitalization)
  Sender: FDA-Public Use
  Company Number: WAES 0709USA04716

PATIENT
  Age: 33 Year
  Sex: Female
  Weight: 65.7716 kg

DRUGS (2)
  1. SINGULAIR [Suspect]
     Indication: ASTHMA
     Dosage: 10 MG/DAILY/PO
     Route: 048
     Dates: start: 20050101, end: 20050728
  2. SINGULAIR [Suspect]
     Indication: RHINITIS ALLERGIC
     Dosage: 10 MG/DAILY/PO
     Route: 048
     Dates: start: 20050101, end: 20050728

REACTIONS (2)
  - FLATULENCE [None]
  - PNEUMONIA [None]
